FAERS Safety Report 8584123-1 (Version None)
Quarter: 2012Q3

REPORT INFORMATION
  Report Type: 
  Country: None (occurrence: None)
  Receive Date: 20120810
  Receipt Date: 20120801
  Transmission Date: 20120928
  Serious: Yes (Hospitalization)
  Sender: FDA-Public Use
  Company Number: US-009507513-2009SP017678

PATIENT

DRUGS (5)
  1. SYNTHROID [Concomitant]
     Indication: THYROID DISORDER
     Dosage: 150 MG, QD
     Dates: start: 19750101
  2. NUVARING [Suspect]
     Indication: MENSTRUAL CYCLE MANAGEMENT
     Dosage: 1 DF, QM
     Dates: start: 20050603, end: 20050701
  3. NUVARING [Suspect]
  4. OMEGA-3-ACID ETHYL ESTERS [Concomitant]
     Indication: PRODUCT USED FOR UNKNOWN INDICATION
     Dates: start: 20050101
  5. PREVACID [Concomitant]
     Indication: GASTROOESOPHAGEAL REFLUX DISEASE
     Dosage: UNK UNK, PRN

REACTIONS (14)
  - SKIN ULCER [None]
  - PAIN IN EXTREMITY [None]
  - TENDONITIS [None]
  - UTERINE LEIOMYOMA [None]
  - PAIN [None]
  - HEADACHE [None]
  - DEEP VEIN THROMBOSIS [None]
  - OEDEMA PERIPHERAL [None]
  - OFF LABEL USE [None]
  - HYPERCOAGULATION [None]
  - HYPERCHOLESTEROLAEMIA [None]
  - CHEST PAIN [None]
  - BREAST MASS [None]
  - SEASONAL ALLERGY [None]
